FAERS Safety Report 7828054-0 (Version None)
Quarter: 2011Q4

REPORT INFORMATION
  Report Type: 
  Country: None (occurrence: None)
  Receive Date: 20111020
  Receipt Date: 20111013
  Transmission Date: 20120403
  Serious: Yes (Other)
  Sender: FDA-Public Use
  Company Number: GB-VIIV HEALTHCARE LIMITED-B0755216A

PATIENT
  Sex: Female

DRUGS (3)
  1. ABACAVIR SULFATE AND LAMIVUDINE [Suspect]
     Indication: HIV INFECTION
     Route: 048
     Dates: start: 20110901, end: 20111013
  2. CETIRIZINE HCL [Concomitant]
     Indication: SKIN DISORDER
  3. EFAVIRENZ [Suspect]
     Indication: HIV INFECTION
     Route: 065
     Dates: start: 20110901, end: 20111013

REACTIONS (11)
  - DRUG HYPERSENSITIVITY [None]
  - HEADACHE [None]
  - PYREXIA [None]
  - RASH [None]
  - SWELLING FACE [None]
  - DIZZINESS [None]
  - RASH PRURITIC [None]
  - ABDOMINAL DISCOMFORT [None]
  - MALAISE [None]
  - NAUSEA [None]
  - APHAGIA [None]
